FAERS Safety Report 21238753 (Version 1)
Quarter: 2022Q3

REPORT INFORMATION
  Report Type: Report from Study
  Country: GB (occurrence: GB)
  Receive Date: 20220822
  Receipt Date: 20220822
  Transmission Date: 20221027
  Serious: Yes (Other)
  Sender: FDA-Public Use
  Company Number: GB-ALXN-A202114305

PATIENT
  Sex: Male

DRUGS (5)
  1. FILGRASTIM [Suspect]
     Active Substance: FILGRASTIM
     Indication: Product used for unknown indication
     Dosage: UNK
     Route: 065
  2. ULTOMIRIS [Concomitant]
     Active Substance: RAVULIZUMAB-CWVZ
     Indication: Paroxysmal nocturnal haemoglobinuria
     Dosage: 3300 MG, Q2W
     Route: 065
     Dates: start: 20210823, end: 20210906
  3. ULTOMIRIS [Concomitant]
     Active Substance: RAVULIZUMAB-CWVZ
     Dosage: 3300 MG, EVERY 8 WEEKS
     Route: 042
     Dates: start: 20211103
  4. ERYTHROMYCIN [Concomitant]
     Active Substance: ERYTHROMYCIN
     Indication: Product used for unknown indication
     Dosage: 500 MG, BID
     Route: 065
  5. PENICILLIN [Concomitant]
     Active Substance: PENICILLIN
     Indication: Prophylaxis
     Dosage: UNK
     Route: 065

REACTIONS (1)
  - Injection site bruising [Unknown]

NARRATIVE: CASE EVENT DATE: 20220101
